FAERS Safety Report 24185625 (Version 1)
Quarter: 2024Q3

REPORT INFORMATION
  Report Type: Spontaneous
  Country: DE (occurrence: DE)
  Receive Date: 20240807
  Receipt Date: 20240807
  Transmission Date: 20241016
  Serious: Yes (Hospitalization)
  Sender: ELI LILLY AND CO
  Company Number: DE-ELI_LILLY_AND_COMPANY-DE202405005795

PATIENT
  Age: 57 Year
  Sex: Male
  Weight: 100 kg

DRUGS (2)
  1. TALTZ [Suspect]
     Active Substance: IXEKIZUMAB
     Indication: Psoriasis
     Dosage: 160 MG, OTHER (LOADING DOSE)
     Route: 065
     Dates: start: 20240306
  2. TALTZ [Suspect]
     Active Substance: IXEKIZUMAB
     Indication: Psoriasis
     Dosage: 80 MG, MONTHLY (1/M)
     Route: 058
     Dates: end: 202404

REACTIONS (3)
  - Psoriasis [Unknown]
  - Foot deformity [Unknown]
  - Inappropriate schedule of product administration [Unknown]

NARRATIVE: CASE EVENT DATE: 20240301
